FAERS Safety Report 14734535 (Version 2)
Quarter: 2018Q2

REPORT INFORMATION
  Report Type: Report from Study
  Country: US (occurrence: US)
  Receive Date: 20180409
  Receipt Date: 20180426
  Transmission Date: 20180711
  Serious: Yes (Death)
  Sender: FDA-Public Use
  Company Number: US-EXELIXIS-CABO-18012875

PATIENT
  Sex: Male

DRUGS (1)
  1. CABOMETYX [Suspect]
     Active Substance: CABOZANTINIB S-MALATE
     Indication: RENAL CANCER
     Dosage: 40 MG, QD
     Route: 048
     Dates: start: 20180209, end: 20180307

REACTIONS (6)
  - Malignant neoplasm progression [Fatal]
  - Feeding disorder [Unknown]
  - Fall [Unknown]
  - Decreased appetite [Unknown]
  - Asthenia [Unknown]
  - Bedridden [Unknown]
